FAERS Safety Report 8913097 (Version 1)
Quarter: 2012Q4

REPORT INFORMATION
  Report Type: Spontaneous
  Country: BR (occurrence: None)
  Receive Date: 20121113
  Receipt Date: 20121113
  Transmission Date: 20130627
  Serious: Yes (Other)
  Sender: FDA-Public Use
  Company Number: 2012-003978

PATIENT
  Sex: Female

DRUGS (1)
  1. ACTONEL [Suspect]
     Indication: BONE DECALCIFICATION
     Route: 048

REACTIONS (1)
  - Implant site necrosis [None]
